FAERS Safety Report 6728328 (Version 4)
Quarter: 2015Q2

REPORT INFORMATION
  Report Type: Spontaneous
  Country: GB (occurrence: GB)
  Receive Date: 20080815
  Receipt Date: 20150609
  Transmission Date: 20150821
  Serious: Yes (Other)
  Sender: FDA-Public Use
  Company Number: GB-JNJFOC-20080802424

PATIENT
  Age: 24 Year
  Sex: Female

DRUGS (2)
  1. TYLENOL [Suspect]
     Active Substance: ACETAMINOPHEN
     Indication: PRODUCT USED FOR UNKNOWN INDICATION
     Dosage: ALLEGED MAXIMUM DOSE 29.5 G
     Route: 065
  2. TYLENOL [Suspect]
     Active Substance: ACETAMINOPHEN
     Route: 065

REACTIONS (5)
  - Foetal death [Recovered/Resolved]
  - Disseminated intravascular coagulation [Unknown]
  - Exposure during pregnancy [Unknown]
  - Overdose [Unknown]
  - Liver injury [Recovered/Resolved]
